FAERS Safety Report 7659781-6 (Version None)
Quarter: 2011Q3

REPORT INFORMATION
  Report Type: 
  Country: None (occurrence: None)
  Receive Date: 20110805
  Receipt Date: 20110802
  Transmission Date: 20111222
  Serious: Yes (Death, Other)
  Sender: FDA-Public Use
  Company Number: PHHY2011GB69376

PATIENT
  Age: 19 Year
  Sex: Female

DRUGS (5)
  1. OMEPRAZOLE [Interacting]
     Indication: EAR INFECTION
  2. SILDENAFIL CITRATE [Suspect]
     Indication: PULMONARY ARTERIAL HYPERTENSION
     Dosage: 50 MG, TID
  3. AMOXICILLIN [Interacting]
     Indication: EAR INFECTION
     Dosage: UNK
  4. DOMPERIDONE [Interacting]
     Indication: EAR INFECTION
  5. SITAXENTAN [Interacting]
     Indication: PULMONARY ARTERIAL HYPERTENSION
     Dosage: 100 MG DAILY

REACTIONS (5)
  - JAUNDICE [None]
  - BRAIN OEDEMA [None]
  - HEPATIC NECROSIS [None]
  - ACUTE HEPATIC FAILURE [None]
  - COAGULOPATHY [None]
